FAERS Safety Report 10167701 (Version 1)
Quarter: 2014Q2

REPORT INFORMATION
  Report Type: Spontaneous
  Country: US (occurrence: US)
  Receive Date: 20140512
  Receipt Date: 20140512
  Transmission Date: 20141212
  Serious: Yes (Hospitalization)
  Sender: FDA-Public Use
  Company Number: US-PFIZER INC-2014129160

PATIENT
  Age: 54 Year
  Sex: Female
  Weight: 48.07 kg

DRUGS (1)
  1. PROTONIX [Suspect]
     Indication: GASTROOESOPHAGEAL REFLUX DISEASE
     Dosage: 40 MG, 2X/DAY

REACTIONS (4)
  - Ovarian cyst [Unknown]
  - Feeling abnormal [Unknown]
  - Impaired work ability [Unknown]
  - Pain [Unknown]
